FAERS Safety Report 6738066-6 (Version None)
Quarter: 2010Q2

REPORT INFORMATION
  Report Type: 
  Country: None (occurrence: None)
  Receive Date: 20100521
  Receipt Date: 20100512
  Transmission Date: 20101027
  Serious: Yes (Hospitalization)
  Sender: FDA-Public Use
  Company Number: WAES 1005USA00530

PATIENT
  Sex: 0

DRUGS (2)
  1. ZOCOR [Suspect]
     Indication: ACUTE CORONARY SYNDROME
     Dosage: 4 MG DAILY PO
     Route: 048
  2. PLACEBO (UNSPECIFIED) [Suspect]
     Indication: ACUTE CORONARY SYNDROME
     Dosage: 1 TAB DAILY PO
     Route: 048

REACTIONS (2)
  - GASTRIC ULCER HAEMORRHAGE [None]
  - PNEUMONIA [None]
